FAERS Safety Report 10603357 (Version 1)
Quarter: 2014Q4

REPORT INFORMATION
  Report Type: Spontaneous
  Country: US (occurrence: US)
  Receive Date: 20141124
  Receipt Date: 20141124
  Transmission Date: 20150529
  Serious: No
  Sender: FDA-Public Use
  Company Number: US-SA-2013SA112742

PATIENT

DRUGS (2)
  1. CALCIUM [Concomitant]
     Active Substance: CALCIUM
     Dosage: REPORTED FREQUENCY: 3 WITH MEALS AND 0 WITH SNACKS
     Route: 065
  2. RENVELA [Suspect]
     Active Substance: SEVELAMER CARBONATE
     Indication: PRODUCT USED FOR UNKNOWN INDICATION
     Dosage: 3 WITH MEALS AND 0 WITH SNACKS
     Route: 065

REACTIONS (1)
  - Rash [Not Recovered/Not Resolved]
